FAERS Safety Report 15679711 (Version 1)
Quarter: 2018Q4

REPORT INFORMATION
  Report Type: Report from Study
  Country: US (occurrence: US)
  Receive Date: 20181203
  Receipt Date: 20181203
  Transmission Date: 20190205
  Serious: Yes (Other)
  Sender: FDA-Public Use
  Company Number: US-BRISTOL-MYERS SQUIBB COMPANY-BMS-2018-110390

PATIENT
  Sex: Male

DRUGS (3)
  1. DOXYCYCLINE. [Concomitant]
     Active Substance: DOXYCYCLINE
     Indication: PRODUCT USED FOR UNKNOWN INDICATION
     Route: 065
  2. NIVOLUMAB [Suspect]
     Active Substance: NIVOLUMAB
     Indication: HEAD AND NECK CANCER
     Dosage: 480 MG, Q4WK
     Route: 042
     Dates: start: 20181120
  3. AUGMENTIN [Concomitant]
     Active Substance: AMOXICILLIN\CLAVULANATE POTASSIUM
     Indication: PRODUCT USED FOR UNKNOWN INDICATION
     Route: 065

REACTIONS (9)
  - Nephrolithiasis [Unknown]
  - Productive cough [Unknown]
  - Cholecystitis [Unknown]
  - Dermatitis acneiform [Unknown]
  - Pruritus [Unknown]
  - Dysphonia [Unknown]
  - Steatorrhoea [Unknown]
  - Fatigue [Unknown]
  - Pain [Unknown]
